FAERS Safety Report 12622864 (Version 2)
Quarter: 2016Q3

REPORT INFORMATION
  Report Type: Spontaneous
  Country: JP (occurrence: JP)
  Receive Date: 20160804
  Receipt Date: 20160811
  Transmission Date: 20161109
  Serious: Yes (Other)
  Sender: FDA-Public Use
  Company Number: JP-JNJFOC-20160726761

PATIENT

DRUGS (1)
  1. XEPLION [Suspect]
     Active Substance: PALIPERIDONE PALMITATE
     Indication: SCHIZOPHRENIA
     Route: 030

REACTIONS (6)
  - Sedation [Unknown]
  - Extrapyramidal disorder [Unknown]
  - Drug ineffective [Unknown]
  - Schizophrenia [Unknown]
  - Hyperprolactinaemia [Unknown]
  - Liver disorder [Unknown]
